FAERS Safety Report 5024839-7 (Version None)
Quarter: 2006Q2

REPORT INFORMATION
  Report Type: 
  Country: None (occurrence: None)
  Receive Date: 20060613
  Receipt Date: 20060608
  Transmission Date: 20061013
  Serious: Yes (Life-Threatening, Other)
  Sender: FDA-Public Use
  Company Number: PHNU2006DE02213

PATIENT
  Age: 35 Year
  Sex: Male
  Weight: 90 kg

DRUGS (7)
  1. TRILEPTAL [Suspect]
     Indication: EPILEPSY
     Dosage: UNK, UNK
     Dates: start: 20060101
  2. TRILEPTAL [Suspect]
     Dosage: 600 MG, BID
  3. TRILEPTAL [Suspect]
     Dosage: 300 MG, BID
  4. TRILEPTAL [Suspect]
     Dosage: 1200 MG/D
     Dates: end: 20060511
  5. L-THYROXINE [Concomitant]
     Dosage: 50 UG/D
  6. LIORESAL [Concomitant]
     Indication: MUSCLE SPASMS
     Dosage: 5 MG, BID
     Dates: start: 20060101, end: 20060511
  7. CLEXANE [Concomitant]
     Indication: PROPHYLAXIS
     Dosage: 0.4 ML, QD
     Route: 058

REACTIONS (6)
  - ATRIOVENTRICULAR BLOCK FIRST DEGREE [None]
  - BRADYCARDIA [None]
  - BUNDLE BRANCH BLOCK RIGHT [None]
  - CONVULSION [None]
  - HYPONATRAEMIA [None]
  - HYPOTHERMIA [None]
